FAERS Safety Report 7893897-4 (Version None)
Quarter: 2011Q4

REPORT INFORMATION
  Report Type: 
  Country: None (occurrence: None)
  Receive Date: 20111104
  Receipt Date: 20111031
  Transmission Date: 20120403
  Serious: Yes (Hospitalization)
  Sender: FDA-Public Use
  Company Number: JP-ABBOTT-11P-087-0849944-00

PATIENT
  Sex: Female
  Weight: 53 kg

DRUGS (4)
  1. MESALAMINE [Concomitant]
     Indication: CROHN'S DISEASE
     Route: 048
  2. HUMIRA [Suspect]
     Indication: CROHN'S DISEASE
     Route: 058
     Dates: start: 20101211, end: 20101211
  3. HUMIRA [Suspect]
     Dates: start: 20110108
  4. HUMIRA [Suspect]
     Dates: start: 20101225, end: 20101225

REACTIONS (3)
  - GASTROINTESTINAL STENOSIS [None]
  - GASTROINTESTINAL ULCER [None]
  - INTESTINAL STENOSIS [None]
